FAERS Safety Report 5598661-7 (Version None)
Quarter: 2008Q1

REPORT INFORMATION
  Report Type: 
  Country: None (occurrence: None)
  Receive Date: 20080122
  Receipt Date: 20071205
  Transmission Date: 20080703
  Serious: Yes (Other)
  Sender: FDA-Public Use
  Company Number: US-BRISTOL-MYERS SQUIBB COMPANY-14046775

PATIENT
  Age: 68 Year
  Sex: Male

DRUGS (8)
  1. LISINOPRIL [Suspect]
     Dates: end: 20071005
  2. GLUCOVANCE [Suspect]
  3. ATENOLOL [Suspect]
  4. PLAVIX [Suspect]
     Indication: CARDIAC DISORDER
     Route: 048
     Dates: start: 20070901, end: 20071005
  5. ASPIRIN [Suspect]
  6. ATORVASTATIN [Suspect]
  7. NORVASC [Suspect]
  8. HYDROCHLOROTHIAZIDE [Suspect]

REACTIONS (2)
  - ANGIOEDEMA [None]
  - DRUG HYPERSENSITIVITY [None]
